APPROVED DRUG PRODUCT: DABIGATRAN ETEXILATE MESYLATE
Active Ingredient: DABIGATRAN ETEXILATE MESYLATE
Strength: EQ 110MG BASE
Dosage Form/Route: CAPSULE;ORAL
Application: A208070 | Product #002 | TE Code: AB
Applicant: APOTEX INC
Approved: Dec 15, 2023 | RLD: No | RS: No | Type: RX